FAERS Safety Report 17771868 (Version 1)
Quarter: 2020Q2

REPORT INFORMATION
  Report Type: Spontaneous
  Country: US (occurrence: US)
  Receive Date: 20200512
  Receipt Date: 20200512
  Transmission Date: 20200714
  Serious: Yes (Other)
  Sender: FDA-Public Use
  Company Number: US-BAYER-2020-076678

PATIENT
  Age: 69 Year
  Sex: Female

DRUGS (12)
  1. GENTAMYCIN [GENTAMICIN] [Suspect]
     Active Substance: GENTAMICIN
     Indication: URINARY TRACT INFECTION
     Dosage: 1 DF, QD TOTAL 2 DOSES (AFTER DIALYSIS)
     Route: 042
     Dates: start: 201209, end: 201209
  2. VANCOMYCIN [Suspect]
     Active Substance: VANCOMYCIN
     Indication: URINARY TRACT INFECTION
     Dosage: 2000 MG, ONCE (LAST 60 MIN OF DIALYSIS)
     Route: 042
     Dates: start: 201205, end: 201205
  3. ERTAPENEM. [Suspect]
     Active Substance: ERTAPENEM SODIUM
     Indication: URINARY TRACT INFECTION
     Dosage: 500 MG, QD TOTAL 4 DOSES (AFTER DIALYSIS)
     Route: 042
     Dates: start: 201206, end: 201206
  4. ERTAPENEM. [Suspect]
     Active Substance: ERTAPENEM SODIUM
     Indication: URINARY TRACT INFECTION
     Dosage: 1000 MG, ONCE (AFTER DIALYSIS)
     Route: 042
     Dates: start: 201206, end: 201206
  5. CEFAZOLIN [Suspect]
     Active Substance: CEFAZOLIN
     Indication: URINARY TRACT INFECTION
     Dosage: 2 G, QD, TOTAL 6 DOSES (AFTER DIALYSIS)
     Route: 042
     Dates: start: 201210, end: 201210
  6. CEFTAZIDIME. [Suspect]
     Active Substance: CEFTAZIDIME
     Indication: URINARY TRACT INFECTION
     Dosage: 1 DF, QD TOTAL 2 DOSES (AFTER DIALYSIS)
     Route: 042
     Dates: start: 201209, end: 201209
  7. CIPROFLOXACIN. [Suspect]
     Active Substance: CIPROFLOXACIN
     Indication: URINARY TRACT INFECTION
     Dosage: 500 MG, QD
     Route: 048
     Dates: start: 201204, end: 201204
  8. CIPROFLOXACIN. [Suspect]
     Active Substance: CIPROFLOXACIN
     Indication: URINARY TRACT INFECTION
     Dosage: 500 MG, QD
     Route: 048
     Dates: start: 201209, end: 201209
  9. ERTAPENEM. [Suspect]
     Active Substance: ERTAPENEM SODIUM
     Indication: URINARY TRACT INFECTION
     Dosage: 1000 MG, ONCE (LAST 30 MIN OF DIALYSIS)
     Route: 042
     Dates: start: 201204, end: 201204
  10. VANCOMYCIN [Suspect]
     Active Substance: VANCOMYCIN
     Indication: URINARY TRACT INFECTION
     Dosage: 1000 MG, QD TOTAL 5 DOSES (LAST 60 MIN OF DIALYSIS)
     Route: 042
     Dates: start: 201205, end: 201205
  11. CEFAZOLIN [Suspect]
     Active Substance: CEFAZOLIN
     Indication: URINARY TRACT INFECTION
     Dosage: 2 G, QD TOTAL 6 DOSES (AFTER DIALYSIS)
     Route: 042
     Dates: start: 201211, end: 201211
  12. ERTAPENEM. [Suspect]
     Active Substance: ERTAPENEM SODIUM
     Indication: URINARY TRACT INFECTION
     Dosage: 500 MG, QD TOTAL 4 DOSES (LAST 30 MIN OF DIALYSIS)
     Route: 042
     Dates: start: 201205, end: 201205

REACTIONS (1)
  - Pathogen resistance [None]

NARRATIVE: CASE EVENT DATE: 201204
